FAERS Safety Report 6467828-8 (Version None)
Quarter: 2009Q4

REPORT INFORMATION
  Report Type: 
  Country: None (occurrence: None)
  Receive Date: 20091119
  Receipt Date: 20090930
  Transmission Date: 20100525
  Serious: Yes (Hospitalization)
  Sender: FDA-Public Use
  Company Number: WAES 0910USA00023

PATIENT
  Age: 63 Year
  Sex: Male

DRUGS (8)
  1. JANUVIA [Suspect]
     Indication: TYPE 2 DIABETES MELLITUS
     Dosage: 100 MG/DAILY/PO
     Route: 048
     Dates: start: 20080201
  2. AVANDAMET [Concomitant]
  3. CRESTOR [Concomitant]
  4. LOTREL [Concomitant]
  5. PRILOSEC [Concomitant]
  6. TRICOR [Concomitant]
  7. ASPIRIN [Concomitant]
  8. CLONIDINE [Concomitant]

REACTIONS (1)
  - PANCREATITIS [None]
